FAERS Safety Report 5243025-9 (Version None)
Quarter: 2007Q1

REPORT INFORMATION
  Report Type: 
  Country: None (occurrence: None)
  Receive Date: 20061201
  Receipt Date: 20060813
  Transmission Date: 20070707
  Serious: No
  Sender: FDA-Public Use
  Company Number: 2006PV019351

PATIENT
  Age: 47 Year
  Sex: Female
  Weight: 95.2554 kg

DRUGS (8)
  1. BYETTA [Suspect]
     Indication: DIABETES MELLITUS NON-INSULIN-DEPENDENT
     Dosage: SEE IMAGE
     Route: 058
     Dates: start: 20060809, end: 20060908
  2. BYETTA [Suspect]
     Indication: DIABETES MELLITUS NON-INSULIN-DEPENDENT
     Dosage: SEE IMAGE
     Route: 058
     Dates: start: 20060909
  3. BYETTA [Suspect]
  4. AMARYL [Concomitant]
  5. GLUCOPHAGE [Concomitant]
  6. PRINIVIL [Concomitant]
  7. CADUET [Concomitant]
  8. METFORMIN HCL [Concomitant]

REACTIONS (10)
  - ASTHENIA [None]
  - BLOOD GLUCOSE DECREASED [None]
  - BLOOD GLUCOSE INCREASED [None]
  - FEELING JITTERY [None]
  - HEART RATE INCREASED [None]
  - INJECTION SITE RASH [None]
  - LETHARGY [None]
  - PHARYNGOLARYNGEAL DISCOMFORT [None]
  - TREMOR [None]
  - WEIGHT DECREASED [None]
